FAERS Safety Report 10685062 (Version 1)
Quarter: 2014Q4

REPORT INFORMATION
  Report Type: Report from Study
  Country: BR (occurrence: BR)
  Receive Date: 20141231
  Receipt Date: 20141231
  Transmission Date: 20150529
  Serious: Yes (Hospitalization)
  Sender: FDA-Public Use
  Company Number: BR-SA-2014SA178135

PATIENT
  Age: 30 Year
  Sex: Male
  Weight: 75 kg

DRUGS (4)
  1. AUTOPEN 24 [Concomitant]
     Active Substance: DEVICE
  2. PANTOPRAZOLE [Concomitant]
     Active Substance: PANTOPRAZOLE SODIUM
     Indication: GASTRIC DISORDER
  3. INSULIN, REGULAR [Suspect]
     Active Substance: INSULIN NOS
     Route: 065
  4. LANTUS [Suspect]
     Active Substance: INSULIN GLARGINE
     Indication: TYPE 1 DIABETES MELLITUS
     Route: 065
     Dates: start: 201406

REACTIONS (11)
  - Palpitations [Recovered/Resolved]
  - Wrong technique in drug usage process [Unknown]
  - Hyperglycaemia [Recovered/Resolved]
  - Nervousness [Recovered/Resolved]
  - Hypoglycaemia [Recovered/Resolved]
  - Chills [Recovered/Resolved]
  - Asthenia [Unknown]
  - Tremor [Recovered/Resolved]
  - Thirst [Recovered/Resolved]
  - Pollakiuria [Recovered/Resolved]
  - Abdominal pain [Unknown]

NARRATIVE: CASE EVENT DATE: 201412
